FAERS Safety Report 22005390 (Version 1)
Quarter: 2023Q1

REPORT INFORMATION
  Report Type: Spontaneous
  Country: US (occurrence: None)
  Receive Date: 20230215
  Receipt Date: 20230215
  Transmission Date: 20230417
  Serious: No
  Sender: FDA-Public Use
  Company Number: None

PATIENT
  Age: 58 Year
  Sex: Male
  Weight: 114.08 kg

DRUGS (13)
  1. SCEMBLIX [Suspect]
     Active Substance: ASCIMINIB HYDROCHLORIDE
     Indication: Chronic myeloid leukaemia
     Dosage: FREQUENCY : EVERY 12 HOURS;?
     Route: 048
  2. EXCEDRIN [Concomitant]
     Active Substance: ACETAMINOPHEN\ASPIRIN\CAFFEINE
  3. FIORICET [Concomitant]
     Active Substance: ACETAMINOPHEN\BUTALBITAL\CAFFEINE
  4. FUROSEMIDE [Concomitant]
     Active Substance: FUROSEMIDE
  5. LEVOTHYROXINE [Concomitant]
     Active Substance: LEVOTHYROXINE
  6. LISINOPRIL [Concomitant]
     Active Substance: LISINOPRIL
  7. LODINE [Concomitant]
     Active Substance: ETODOLAC
  8. LOPERAMIDE [Concomitant]
     Active Substance: LOPERAMIDE
  9. MOVE FREE JOINT HEALTH ADVANCE [Concomitant]
  10. VITAMINS [Concomitant]
     Active Substance: VITAMINS
  11. ONDANSETRON [Concomitant]
     Active Substance: ONDANSETRON
  12. POTASSIUM CITRATE [Concomitant]
     Active Substance: POTASSIUM CITRATE
  13. FISH OIL [Concomitant]
     Active Substance: FISH OIL

REACTIONS (2)
  - Seizure [None]
  - Therapy cessation [None]

NARRATIVE: CASE EVENT DATE: 20230215
